FAERS Safety Report 9551566 (Version 1)
Quarter: 2013Q3

REPORT INFORMATION
  Report Type: Spontaneous
  Country: US (occurrence: None)
  Receive Date: 20130724
  Receipt Date: 20130724
  Transmission Date: 20140515
  Serious: Yes (Hospitalization)
  Sender: FDA-Public Use
  Company Number: PHEH2013US005667

PATIENT
  Age: 82 Year
  Sex: Female

DRUGS (4)
  1. AFINITOR (RAD) TABLET, 10MG [Suspect]
     Indication: BREAST CANCER
     Route: 048
  2. AROMASIN [Concomitant]
  3. XGEVA [Concomitant]
  4. LISINOPRIL [Concomitant]

REACTIONS (4)
  - Angioedema [None]
  - Dysarthria [None]
  - Tongue oedema [None]
  - Oedema peripheral [None]
